FAERS Safety Report 7393422-0 (Version None)
Quarter: 2011Q2

REPORT INFORMATION
  Report Type: 
  Country: None (occurrence: None)
  Receive Date: 20110405
  Receipt Date: 20110325
  Transmission Date: 20111010
  Serious: Yes (Hospitalization, Other)
  Sender: FDA-Public Use
  Company Number: DE-RANBAXY-2011US-43401

PATIENT

DRUGS (7)
  1. SOMAC [Suspect]
     Indication: GASTRIC ULCER
     Dosage: 40 MG, UNK
     Route: 048
     Dates: start: 20100401
  2. PRISTIQ [Suspect]
     Indication: DEPRESSION
     Dosage: 50MG, UNK
     Route: 048
     Dates: start: 20100101
  3. VENTOLIN [Suspect]
     Indication: ASTHMA
     Dosage: 6 PUFFS,PRN
     Route: 065
     Dates: start: 20100401
  4. WARFARIN SODIUM [Suspect]
     Indication: PULMONARY EMBOLISM
     Dosage: 8 MG,UNK
     Route: 048
     Dates: start: 20090601
  5. CLEXANE [Suspect]
     Indication: PULMONARY EMBOLISM
     Dosage: 100MG,BID
     Route: 058
     Dates: start: 20110301, end: 20110304
  6. OXYCONTIN [Suspect]
     Indication: PAIN
     Dosage: 10MG,BID
     Route: 048
     Dates: start: 20110301
  7. DOXYCYCLINE TABLETS [Suspect]
     Indication: ACNE
     Dosage: 100 MG, UNK
     Route: 048
     Dates: start: 20090801

REACTIONS (1)
  - LIVER FUNCTION TEST ABNORMAL [None]
